FAERS Safety Report 21121613 (Version 2)
Quarter: 2023Q1

REPORT INFORMATION
  Report Type: Report from Study
  Country: BR (occurrence: BR)
  Receive Date: 20220722
  Receipt Date: 20230116
  Transmission Date: 20230417
  Serious: Yes (Other)
  Sender: FDA-Public Use
  Company Number: BR-JNJFOC-20190506748

PATIENT
  Age: 36 Year
  Sex: Female
  Weight: 56 kg

DRUGS (8)
  1. INFLIXIMAB [Suspect]
     Active Substance: INFLIXIMAB
     Indication: Crohn^s disease
     Dosage: 3 VIALS EVERY 8 WEEKS,
     Route: 041
     Dates: start: 2011
  2. REMICADE [Suspect]
     Active Substance: INFLIXIMAB
     Indication: Crohn^s disease
     Route: 041
     Dates: start: 20150928
  3. INFLIXIMAB [Suspect]
     Active Substance: INFLIXIMAB
     Indication: Crohn^s disease
     Route: 065
     Dates: start: 20220909
  4. OMEGA-3 FATTY ACIDS [Concomitant]
     Active Substance: OMEGA-3 FATTY ACIDS
     Route: 065
  5. METICORTEN [Concomitant]
     Active Substance: PREDNISONE
     Route: 065
  6. METICORTEN [Concomitant]
     Active Substance: PREDNISONE
     Route: 065
  7. VITAMINS [Concomitant]
     Active Substance: VITAMINS
     Route: 065
  8. FOSFOMYCIN TROMETHAMINE [Concomitant]
     Active Substance: FOSFOMYCIN TROMETHAMINE
     Route: 065

REACTIONS (8)
  - Intestinal stenosis [Unknown]
  - Crohn^s disease [Recovered/Resolved]
  - Amniotic fluid volume decreased [Unknown]
  - Caesarean section [Unknown]
  - Hypertension [Not Recovered/Not Resolved]
  - Erythema nodosum [Unknown]
  - Exposure during pregnancy [Recovered/Resolved]
  - Bladder pain [Unknown]

NARRATIVE: CASE EVENT DATE: 20190101
